FAERS Safety Report 4625957-5 (Version None)
Quarter: 2005Q1

REPORT INFORMATION
  Report Type: 
  Country: None (occurrence: None)
  Receive Date: 20050330
  Receipt Date: 20050322
  Transmission Date: 20050727
  Serious: Yes (Other)
  Sender: FDA-Public Use
  Company Number: 2005025469

PATIENT
  Age: 64 Year
  Sex: Female
  Weight: 77.1115 kg

DRUGS (5)
  1. CELEBREX [Suspect]
     Indication: ILL-DEFINED DISORDER
     Dates: start: 19980101
  2. ARTHROTEC [Suspect]
     Indication: ILL-DEFINED DISORDER
  3. ROFECOXIB [Suspect]
     Indication: ILL-DEFINED DISORDER
  4. SALSALATE (SALSALATE) [Concomitant]
  5. PROVELLA-14 [Concomitant]

REACTIONS (4)
  - DRUG INEFFECTIVE [None]
  - KNEE OPERATION [None]
  - MACULAR DEGENERATION [None]
  - UNEVALUABLE EVENT [None]
